FAERS Safety Report 9317757 (Version 1)
Quarter: 2013Q2

REPORT INFORMATION
  Report Type: Spontaneous
  Country: US (occurrence: US)
  Receive Date: 20130530
  Receipt Date: 20130530
  Transmission Date: 20140414
  Serious: No
  Sender: FDA-Public Use
  Company Number: US-NOVEN-12US005004

PATIENT
  Sex: Male
  Weight: 20.41 kg

DRUGS (3)
  1. DAYTRANA [Suspect]
     Indication: ATTENTION DEFICIT/HYPERACTIVITY DISORDER
     Dosage: 15 MG, QD
     Route: 062
     Dates: start: 201207
  2. DAYTRANA [Suspect]
     Dosage: 10 MG, QD
     Route: 062
     Dates: start: 2011, end: 201207
  3. CLONIDINE [Concomitant]
     Indication: SLEEP DISORDER
     Dosage: 0.1 MG, UNK
     Route: 048

REACTIONS (2)
  - Paranoia [Not Recovered/Not Resolved]
  - Off label use [Recovered/Resolved]
